FAERS Safety Report 7912849-9 (Version None)
Quarter: 2011Q4

REPORT INFORMATION
  Report Type: 
  Country: None (occurrence: None)
  Receive Date: 20111114
  Receipt Date: 20111101
  Transmission Date: 20120403
  Serious: Yes (Other)
  Sender: FDA-Public Use
  Company Number: RU-VIIV HEALTHCARE LIMITED-B0761413A

PATIENT
  Sex: Female

DRUGS (7)
  1. KALETRA [Suspect]
     Indication: HIV INFECTION
     Route: 048
     Dates: start: 20110725, end: 20110805
  2. PHOSPHAZIDE [Concomitant]
     Indication: HIV INFECTION
     Route: 048
     Dates: start: 20110812, end: 20111012
  3. ZIAGEN [Suspect]
     Indication: HIV INFECTION
     Route: 048
     Dates: start: 20110816, end: 20111012
  4. COMBIVIR [Suspect]
     Indication: HIV INFECTION
     Route: 048
     Dates: start: 20110725, end: 20110805
  5. UNKNOWN MEDICATION [Concomitant]
     Dates: start: 20110725
  6. EPIVIR [Suspect]
     Indication: HIV INFECTION
     Route: 048
     Dates: start: 20110812, end: 20110816
  7. REYATAZ [Concomitant]
     Indication: HIV INFECTION
     Route: 048
     Dates: start: 20110812, end: 20110816

REACTIONS (5)
  - HYPERSENSITIVITY [None]
  - RASH GENERALISED [None]
  - BODY TEMPERATURE INCREASED [None]
  - HYPERAEMIA [None]
  - MATERNAL EXPOSURE DURING PREGNANCY [None]
